FAERS Safety Report 9683438 (Version 1)
Quarter: 2013Q4

REPORT INFORMATION
  Report Type: Report from Study
  Country: US (occurrence: US)
  Receive Date: 20131112
  Receipt Date: 20131112
  Transmission Date: 20140711
  Serious: Yes (Other)
  Sender: FDA-Public Use
  Company Number: US-ROCHE-1299835

PATIENT
  Sex: Male

DRUGS (8)
  1. NUTROPIN [Suspect]
     Indication: HYPOPITUITARISM
     Dosage: NUTROPIN NUSPIN 10 MG
     Route: 058
  2. ATENOLOL [Concomitant]
     Route: 048
  3. CRESTOR [Concomitant]
     Dosage: 1/2 TABLET
     Route: 048
  4. FISH OIL [Concomitant]
     Dosage: DAILY
     Route: 065
  5. LASIX [Concomitant]
     Route: 048
  6. LEVOTHYROXINE [Concomitant]
     Dosage: DAILY
     Route: 048
     Dates: start: 20130820
  7. PLAVIX [Concomitant]
     Dosage: DAILY
     Route: 048
  8. TESTOSTERONE CYPIONATE [Concomitant]
     Dosage: 200 MG/ML INJECT IN 1ML EVERY 10 DAYS
     Route: 030

REACTIONS (6)
  - Pneumonia bacterial [Unknown]
  - Drug dose omission [Unknown]
  - Pain [Unknown]
  - Asthenia [Unknown]
  - Oedema [Unknown]
  - Balance disorder [Unknown]
